FAERS Safety Report 4803403-6 (Version None)
Quarter: 2005Q4

REPORT INFORMATION
  Report Type: 
  Country: None (occurrence: None)
  Receive Date: 20051019
  Receipt Date: 20051017
  Transmission Date: 20060501
  Serious: Yes (Hospitalization)
  Sender: FDA-Public Use
  Company Number: US-JNJFOC-20051003687

PATIENT
  Age: 86 Year
  Sex: Female
  Weight: 59.88 kg

DRUGS (1)
  1. LEVAQUIN [Suspect]
     Route: 048

REACTIONS (1)
  - APHASIA [None]
